FAERS Safety Report 6084260-X (Version None)
Quarter: 2009Q1

REPORT INFORMATION
  Report Type: 
  Country: None (occurrence: None)
  Receive Date: 20090219
  Receipt Date: 20090210
  Transmission Date: 20090719
  Serious: Yes (Other)
  Sender: FDA-Public Use
  Company Number: PHHY2008US31521

PATIENT
  Sex: Female
  Weight: 82.086 kg

DRUGS (4)
  1. FEMARA [Suspect]
     Indication: BREAST CANCER
     Dosage: 2.5 MG, QD
     Route: 048
     Dates: start: 20080625, end: 20081119
  2. LEVOXYL [Concomitant]
     Indication: THYROID DISORDER
     Dosage: 12.5 MG, UNK
     Route: 048
     Dates: start: 20080418
  3. LISINOPRIL [Concomitant]
     Indication: BLOOD PRESSURE
     Dosage: 20 MG, UNK
     Route: 048
     Dates: start: 20080418
  4. METOPROLOL TARTRATE [Concomitant]
     Indication: CARDIAC DISORDER
     Dosage: 100 MG, UNK
     Route: 048
     Dates: start: 20080418

REACTIONS (4)
  - AMNESIA [None]
  - ARTHRALGIA [None]
  - EYE DISORDER [None]
  - HYPERHIDROSIS [None]
